FAERS Safety Report 7558732-2 (Version None)
Quarter: 2011Q2

REPORT INFORMATION
  Report Type: 
  Country: None (occurrence: None)
  Receive Date: 20110621
  Receipt Date: 20110613
  Transmission Date: 20111010
  Serious: No
  Sender: FDA-Public Use
  Company Number: US-BIOGENIDEC-2011BI021889

PATIENT
  Age: 69 Year
  Sex: Female

DRUGS (3)
  1. TYSABRI [Suspect]
     Route: 042
     Dates: start: 20061016, end: 20090206
  2. TYSABRI [Suspect]
     Indication: MULTIPLE SCLEROSIS
     Route: 042
     Dates: start: 20091112
  3. TYSABRI [Suspect]
     Route: 042
     Dates: start: 20050203

REACTIONS (2)
  - PAIN IN EXTREMITY [None]
  - HYPOAESTHESIA [None]
